FAERS Safety Report 16100593 (Version 2)
Quarter: 2019Q1

REPORT INFORMATION
  Report Type: Report from Study
  Country: US (occurrence: US)
  Receive Date: 20190321
  Receipt Date: 20190327
  Transmission Date: 20190418
  Serious: Yes (Death, Other)
  Sender: FDA-Public Use
  Company Number: US-SA-2019SA076059

PATIENT
  Age: 1 Year
  Sex: Male

DRUGS (6)
  1. MYCOPHENOLATE MOFETIL. [Suspect]
     Active Substance: MYCOPHENOLATE MOFETIL
     Indication: VENOOCCLUSIVE DISEASE
     Dosage: 500 MG/M2 PER DOSE, GIVEN EVERY 12 HRS FOR 3 DAYS FOR A TOTAL OF 6 DOSES
     Route: 042
  2. DEFIBROTIDE [Suspect]
     Active Substance: DEFIBROTIDE (BOVINE)
     Indication: VENOOCCLUSIVE DISEASE
     Dosage: 6.25 MG/KG PER DOSE EVERY 6 HOURS FOR A MINIMUM OF 21 DAYS PER MANUFACTURER DOSING INSTRUCTIONS
  3. FLUDARABINE PHOSPHATE. [Suspect]
     Active Substance: FLUDARABINE PHOSPHATE
     Indication: BONE MARROW CONDITIONING REGIMEN
  4. MYCOPHENOLATE MOFETIL. [Suspect]
     Active Substance: MYCOPHENOLATE MOFETIL
     Dosage: QUICK TAPER
  5. ALEMTUZUMAB [Suspect]
     Active Substance: ALEMTUZUMAB
     Indication: BONE MARROW CONDITIONING REGIMEN
  6. MELPHALAN. [Suspect]
     Active Substance: MELPHALAN
     Indication: BONE MARROW CONDITIONING REGIMEN

REACTIONS (7)
  - Multiple organ dysfunction syndrome [Fatal]
  - Lung disorder [Fatal]
  - Drug ineffective [Unknown]
  - Hyperglycaemia [Recovered/Resolved]
  - Off label use [Fatal]
  - Venoocclusive disease [Fatal]
  - Renal disorder [Fatal]
